FAERS Safety Report 4921408-1 (Version None)
Quarter: 2006Q1

REPORT INFORMATION
  Report Type: 
  Country: None (occurrence: None)
  Receive Date: 20060222
  Receipt Date: 20060222
  Transmission Date: 20060701
  Serious: Yes (Death)
  Sender: FDA-Public Use
  Company Number: None

PATIENT
  Sex: Male

DRUGS (6)
  1. DOCETAXEL (35MG/M2 IVPB) [Suspect]
     Indication: PANCREATIC CARCINOMA METASTATIC
     Dosage: 70 MG WEEKLY IVPB
     Route: 042
     Dates: start: 20051229
  2. DOCETAXEL (35MG/M2 IVPB) [Suspect]
     Indication: PANCREATIC CARCINOMA METASTATIC
     Dosage: 70 MG WEEKLY IVPB
     Route: 042
     Dates: start: 20060106
  3. DOCETAXEL (35MG/M2 IVPB) [Suspect]
     Indication: PANCREATIC CARCINOMA METASTATIC
     Dosage: 70 MG WEEKLY IVPB
     Route: 042
     Dates: start: 20060112
  4. IRINOTECAN  50 MG/M2 IVPB [Suspect]
     Indication: PANCREATIC CARCINOMA METASTATIC
     Dosage: 100MG WEEKLY IVPB
     Route: 042
     Dates: start: 20051229
  5. IRINOTECAN  50 MG/M2 IVPB [Suspect]
     Indication: PANCREATIC CARCINOMA METASTATIC
     Dosage: 100MG WEEKLY IVPB
     Route: 042
     Dates: start: 20060106
  6. IRINOTECAN  50 MG/M2 IVPB [Suspect]
     Indication: PANCREATIC CARCINOMA METASTATIC
     Dosage: 100MG WEEKLY IVPB
     Route: 042
     Dates: start: 20060112

REACTIONS (4)
  - ATRIAL FIBRILLATION [None]
  - PULMONARY EMBOLISM [None]
  - PYREXIA [None]
  - SEPSIS [None]
